FAERS Safety Report 5131565-2 (Version None)
Quarter: 2006Q4

REPORT INFORMATION
  Report Type: 
  Country: None (occurrence: None)
  Receive Date: 20061020
  Receipt Date: 20060911
  Transmission Date: 20070319
  Serious: Yes (Other)
  Sender: FDA-Public Use
  Company Number: SE-JNJFOC-20060402103

PATIENT
  Age: 43 Year
  Sex: Male

DRUGS (2)
  1. CONCERTA [Suspect]
     Indication: ATTENTION DEFICIT/HYPERACTIVITY DISORDER
     Route: 048
  2. TIPAROL [Interacting]
     Indication: BACK PAIN
     Route: 048

REACTIONS (2)
  - DELUSIONAL DISORDER, PERSECUTORY TYPE [None]
  - DRUG INTERACTION [None]
